FAERS Safety Report 20518683 (Version 1)
Quarter: 2022Q1

REPORT INFORMATION
  Report Type: Spontaneous
  Country: SE (occurrence: SE)
  Receive Date: 20220225
  Receipt Date: 20220225
  Transmission Date: 20220424
  Serious: Yes (Other)
  Sender: FDA-Public Use
  Company Number: SE-BAYER-2022A028237

PATIENT
  Age: 38 Year
  Sex: Female

DRUGS (2)
  1. LEVONORGESTREL [Suspect]
     Active Substance: LEVONORGESTREL
     Dosage: UNK
     Route: 015
     Dates: start: 2018, end: 2018
  2. UNSPECIFIED INGREDIENT [Concomitant]
     Active Substance: UNSPECIFIED INGREDIENT

REACTIONS (6)
  - Uterine inflammation [Recovered/Resolved]
  - Abdominal pain [Recovered/Resolved]
  - Syncope [Recovered/Resolved]
  - Ovulation pain [Recovered/Resolved]
  - Dysmenorrhoea [Recovered/Resolved]
  - Uterine enlargement [Recovered/Resolved]
